FAERS Safety Report 4750351-6 (Version None)
Quarter: 2005Q3

REPORT INFORMATION
  Report Type: 
  Country: None (occurrence: None)
  Receive Date: 20050818
  Receipt Date: 20050804
  Transmission Date: 20060218
  Serious: Yes (Hospitalization, Other)
  Sender: FDA-Public Use
  Company Number: CA-2005-012865

PATIENT
  Age: 47 Year
  Sex: Female
  Weight: 95 kg

DRUGS (6)
  1. BETASERON [Suspect]
     Indication: RELAPSING-REMITTING MULTIPLE SCLEROSIS
     Dosage: 8 MIU, EVERY 2D, SUBCUTANEOUS
     Route: 058
     Dates: start: 20041208
  2. ENTROPHEN (ACETYLSALICYLIC ACID) [Concomitant]
  3. LOSEC   / CAN (OMEPRAZOLE MAGNESKUM) [Concomitant]
  4. LIPITOR [Concomitant]
  5. METOPROLOL TARTRATE [Concomitant]
  6. DIAZEPAM (D9AZEPAM) [Concomitant]

REACTIONS (1)
  - MYOCARDIAL INFARCTION [None]
